FAERS Safety Report 25835375 (Version 1)
Quarter: 2025Q3

REPORT INFORMATION
  Report Type: Spontaneous
  Country: IN (occurrence: IN)
  Receive Date: 20250923
  Receipt Date: 20250923
  Transmission Date: 20251020
  Serious: Yes (Hospitalization, Other)
  Sender: NOVITIUM PHARMA
  Company Number: IN-NOVITIUMPHARMA-2025INNVP02353

PATIENT
  Age: 22 Year
  Sex: Male

DRUGS (15)
  1. DAPSONE [Suspect]
     Active Substance: DAPSONE
     Indication: Leprosy
  2. CLOFAZIMINE [Concomitant]
     Active Substance: CLOFAZIMINE
  3. CLOFAZIMINE [Concomitant]
     Active Substance: CLOFAZIMINE
  4. PREDNISOLONE [Concomitant]
     Active Substance: PREDNISOLONE
  5. PREDNISOLONE [Concomitant]
     Active Substance: PREDNISOLONE
  6. PREDNISOLONE [Concomitant]
     Active Substance: PREDNISOLONE
     Indication: Type 2 lepra reaction
  7. RIFAMPIN [Concomitant]
     Active Substance: RIFAMPIN
  8. THALIDOMIDE [Concomitant]
     Active Substance: THALIDOMIDE
     Indication: Type 2 lepra reaction
  9. THALIDOMIDE [Concomitant]
     Active Substance: THALIDOMIDE
  10. AZATHIOPRINE [Concomitant]
     Active Substance: AZATHIOPRINE
     Indication: Type 2 lepra reaction
  11. AZATHIOPRINE [Concomitant]
     Active Substance: AZATHIOPRINE
  12. ENOXAPARIN SODIUM [Concomitant]
     Active Substance: ENOXAPARIN SODIUM
  13. WARFARIN [Concomitant]
     Active Substance: WARFARIN
  14. WARFARIN [Concomitant]
     Active Substance: WARFARIN
  15. WARFARIN [Concomitant]
     Active Substance: WARFARIN

REACTIONS (3)
  - International normalised ratio fluctuation [Unknown]
  - Hepatitis [Unknown]
  - Drug interaction [Unknown]
